FAERS Safety Report 10034507 (Version 1)
Quarter: 2014Q1

REPORT INFORMATION
  Report Type: Spontaneous
  Country: US (occurrence: None)
  Receive Date: 20140306
  Receipt Date: 20140306
  Transmission Date: 20141002
  Serious: Yes (Hospitalization, Other)
  Sender: FDA-Public Use
  Company Number: 163-21880-13021213

PATIENT
  Age: 76 Year
  Sex: Female
  Weight: 66.23 kg

DRUGS (2)
  1. REVLIMID [Suspect]
     Indication: PLASMA CELL MYELOMA
     Dosage: 10 MG, 1 IN 1 D, PO
     Route: 048
     Dates: start: 20110203
  2. BLOOD (BLOOD, WHOLE) (INJECTION) [Concomitant]

REACTIONS (9)
  - Atrial fibrillation [None]
  - Arrhythmia [None]
  - Diarrhoea [None]
  - Dehydration [None]
  - Drug dose omission [None]
  - Pruritus [None]
  - Rash [None]
  - Pain [None]
  - Infection [None]
